FAERS Safety Report 19242475 (Version 1)
Quarter: 2021Q2

REPORT INFORMATION
  Report Type: Spontaneous
  Country: US (occurrence: US)
  Receive Date: 20210511
  Receipt Date: 20210511
  Transmission Date: 20210717
  Serious: Yes (Hospitalization)
  Sender: FDA-Public Use
  Company Number: US-LUPIN PHARMACEUTICALS INC.-2021-06622

PATIENT
  Age: 38 Year
  Sex: Male

DRUGS (12)
  1. BENADRYL [Concomitant]
     Active Substance: DIPHENHYDRAMINE HYDROCHLORIDE
     Dosage: UNK
     Route: 048
  2. EPINEPHRINE. [Concomitant]
     Active Substance: EPINEPHRINE
     Indication: ADVERSE DRUG REACTION
     Dosage: UNK (INHALED RACEMIC EPINEPHRINE)
     Route: 055
  3. DIPHENHYDRAMINE. [Concomitant]
     Active Substance: DIPHENHYDRAMINE
     Indication: PREMEDICATION
     Dosage: 50 MILLIGRAM
     Route: 030
  4. METHYLPREDNISOLONE. [Concomitant]
     Active Substance: METHYLPREDNISOLONE
     Indication: ADVERSE DRUG REACTION
     Dosage: 125 MILLIGRAM
     Route: 030
  5. BENADRYL [Concomitant]
     Active Substance: DIPHENHYDRAMINE HYDROCHLORIDE
     Indication: PREMEDICATION
     Dosage: UNK
     Route: 042
  6. EPIPEN [Concomitant]
     Active Substance: EPINEPHRINE
     Indication: ADVERSE DRUG REACTION
     Dosage: UNK (SELF?ADMINISTERED HIS EPINEPHRINE AT HOME)
     Route: 065
  7. DIPHENHYDRAMINE. [Concomitant]
     Active Substance: DIPHENHYDRAMINE
     Indication: ADVERSE DRUG REACTION
     Dosage: UNK
     Route: 048
  8. CETIRIZINE [Concomitant]
     Active Substance: CETIRIZINE HYDROCHLORIDE
     Indication: PREMEDICATION
     Dosage: 20 MILLIGRAM, BID
     Route: 048
  9. CEFTRIAXONE. [Suspect]
     Active Substance: CEFTRIAXONE
     Indication: NEUROSYPHILIS
     Dosage: 2 GRAM, QD
     Route: 042
  10. PENICILLIN G [Suspect]
     Active Substance: PENICILLIN G
     Indication: NEUROSYPHILIS
     Dosage: 20000000 INTERNATIONAL UNIT, QD (VIA CONTINUOUS INFUSION FOR A 2?WEEK COURSE)
     Route: 042
  11. PREDNISONE. [Concomitant]
     Active Substance: PREDNISONE
     Indication: PREMEDICATION
     Dosage: 20 MILLIGRAM, BID
     Route: 048
  12. FAMOTIDINE. [Concomitant]
     Active Substance: FAMOTIDINE
     Indication: PREMEDICATION
     Dosage: UNK
     Route: 042

REACTIONS (15)
  - Dizziness [Recovered/Resolved]
  - Adverse drug reaction [Recovered/Resolved]
  - Urticaria [Recovered/Resolved]
  - Ear pruritus [Recovered/Resolved]
  - Upper respiratory tract congestion [Recovered/Resolved]
  - Erythema [Recovered/Resolved]
  - Rash erythematous [Recovered/Resolved]
  - Pruritus [Recovered/Resolved]
  - Dyspnoea [Recovered/Resolved]
  - Chest pain [Recovered/Resolved]
  - Rash [Recovered/Resolved]
  - Throat tightness [Recovered/Resolved]
  - Pharyngeal swelling [Recovered/Resolved]
  - Rash pruritic [Recovered/Resolved]
  - Tachycardia [Recovered/Resolved]
